FAERS Safety Report 4912547-X (Version None)
Quarter: 2006Q1

REPORT INFORMATION
  Report Type: 
  Country: None (occurrence: None)
  Receive Date: 20060215
  Receipt Date: 20040407
  Transmission Date: 20060701
  Serious: Yes (Hospitalization)
  Sender: FDA-Public Use
  Company Number: BR-ABBOTT-04P-020-0256463-00

PATIENT
  Sex: Male

DRUGS (8)
  1. RITONAVIR SOFT GELATIN CAPSULES [Suspect]
     Indication: HIV INFECTION
     Route: 048
     Dates: start: 20031014, end: 20040331
  2. TIPRANAVIR [Concomitant]
     Indication: HIV INFECTION
     Dates: start: 20031014, end: 20040331
  3. SAQUINAVIR [Concomitant]
     Indication: HIV INFECTION
     Dates: start: 20031014
  4. CLARITHROMYCIN [Concomitant]
     Indication: ATYPICAL MYCOBACTERIAL INFECTION
     Route: 048
  5. STAVUDINE [Concomitant]
     Indication: HIV INFECTION
     Route: 048
     Dates: start: 20031014, end: 20040331
  6. LAMIVUDINE [Concomitant]
     Indication: HIV INFECTION
     Route: 048
     Dates: start: 20030101
  7. PHENOBARBITAL TAB [Concomitant]
     Indication: CONVULSION
     Route: 048
  8. CARBAMAZEPINE [Concomitant]
     Indication: CONVULSION
     Route: 048

REACTIONS (1)
  - ATYPICAL MYCOBACTERIAL INFECTION [None]
